FAERS Safety Report 9630791 (Version 2)
Quarter: 2013Q4

REPORT INFORMATION
  Report Type: Report from Study
  Country: US (occurrence: US)
  Receive Date: 20131018
  Receipt Date: 20131212
  Transmission Date: 20140711
  Serious: Yes (Hospitalization, Other)
  Sender: FDA-Public Use
  Company Number: US-JNJFOC-20131008181

PATIENT
  Sex: Female
  Weight: 62.6 kg

DRUGS (14)
  1. REMICADE [Suspect]
     Indication: RHEUMATOID ARTHRITIS
     Route: 042
     Dates: start: 20130813
  2. NAMENDA [Concomitant]
     Route: 048
  3. FOLIC ACID [Concomitant]
     Route: 048
  4. PRILOSEC [Concomitant]
     Indication: DYSPEPSIA
     Route: 048
  5. NEURONTIN [Concomitant]
     Indication: NEUROPATHY PERIPHERAL
     Route: 048
  6. LEXAPRO [Concomitant]
     Route: 048
  7. BAYER ASPIRIN [Concomitant]
     Indication: CARDIAC DISORDER
     Route: 048
  8. SINGULAIR [Concomitant]
     Indication: ASTHMA
     Route: 048
  9. METOPROLOL [Concomitant]
     Indication: CARDIAC DISORDER
     Route: 048
  10. PROGESTERONE [Concomitant]
     Indication: REPRODUCTIVE TRACT DISORDER
     Route: 048
  11. HYDROXYCHLOROQUINE [Concomitant]
     Route: 048
  12. METHOTREXATE [Concomitant]
     Route: 048
  13. ALPRAZOLAM [Concomitant]
     Route: 048
  14. EVOXAC [Concomitant]
     Route: 048

REACTIONS (4)
  - Fall [Not Recovered/Not Resolved]
  - Ankle fracture [Not Recovered/Not Resolved]
  - Balance disorder [Not Recovered/Not Resolved]
  - Amnesia [Not Recovered/Not Resolved]
